FAERS Safety Report 7955504-1 (Version None)
Quarter: 2011Q4

REPORT INFORMATION
  Report Type: 
  Country: None (occurrence: None)
  Receive Date: 20111202
  Receipt Date: 20111128
  Transmission Date: 20120403
  Serious: Yes (Hospitalization)
  Sender: FDA-Public Use
  Company Number: IT-ABBOTT-11P-083-0868860-00

PATIENT
  Age: 55 Year
  Sex: Male

DRUGS (4)
  1. KALETRA [Suspect]
     Indication: PRODUCT USED FOR UNKNOWN INDICATION
     Route: 048
     Dates: start: 20110929, end: 20111020
  2. EPIVIR [Concomitant]
     Indication: PRODUCT USED FOR UNKNOWN INDICATION
  3. ARIXTRA [Suspect]
     Indication: IMMOBILISATION PROLONGED
     Dosage: 2.5 MG / 0.5 ML
     Route: 058
     Dates: start: 20110927, end: 20111018
  4. ISENTRESS [Concomitant]
     Indication: PRODUCT USED FOR UNKNOWN INDICATION

REACTIONS (2)
  - HAEMATOMA [None]
  - ARTERIAL HAEMORRHAGE [None]
